FAERS Safety Report 18032051 (Version 2)
Quarter: 2020Q3

REPORT INFORMATION
  Report Type: Spontaneous
  Country: US (occurrence: US)
  Receive Date: 20200716
  Receipt Date: 20200723
  Transmission Date: 20201103
  Serious: No
  Sender: FDA-Public Use
  Company Number: US-PFIZER INC-2020266516

PATIENT
  Age: 68 Year
  Sex: Female
  Weight: 86.18 kg

DRUGS (3)
  1. VITAMIN C [Concomitant]
     Active Substance: ASCORBIC ACID
     Indication: IMMUNE DISORDER PROPHYLAXIS
     Dosage: 1 DF, 1X/DAY[1 TABLET BY MOUTH ONCE A DAY]
     Route: 048
     Dates: start: 2020
  2. PREMARIN [Suspect]
     Active Substance: ESTROGENS, CONJUGATED
     Indication: ATROPHIC VULVOVAGINITIS
     Dosage: 1 G, 2X/WEEK[APPLY 1 GM VAGINALLY TWO TIMES A WEEK]
     Route: 067
  3. VITAMIN D [COLECALCIFEROL] [Concomitant]
     Active Substance: CHOLECALCIFEROL
     Indication: IMMUNE DISORDER PROPHYLAXIS
     Dosage: 1 TABLET, ONCE A DAY
     Route: 048
     Dates: start: 2020

REACTIONS (5)
  - Vulvovaginal erythema [Not Recovered/Not Resolved]
  - Product storage error [Unknown]
  - Off label use [Unknown]
  - Product administration error [Unknown]
  - Vulvovaginal pain [Not Recovered/Not Resolved]

NARRATIVE: CASE EVENT DATE: 202007
